FAERS Safety Report 4777823-2 (Version None)
Quarter: 2005Q3

REPORT INFORMATION
  Report Type: 
  Country: None (occurrence: None)
  Receive Date: 20050922
  Receipt Date: 20050909
  Transmission Date: 20060218
  Serious: No
  Sender: FDA-Public Use
  Company Number: US-2005-015407

PATIENT
  Age: 52 Year
  Sex: Female
  Weight: 56.7 kg

DRUGS (3)
  1. BETASERON [Suspect]
     Indication: RELAPSING-REMITTING MULTIPLE SCLEROSIS
     Dosage: 8 MIU, EVERY 2D, SUBCUTANEOUS
     Route: 058
     Dates: start: 19900101
  2. PREDNISONE [Concomitant]
  3. VITAMINS NOS (VITAMINS NOS) [Concomitant]

REACTIONS (4)
  - STRESS [None]
  - THYROID DISORDER [None]
  - TREMOR [None]
  - URINARY TRACT INFECTION [None]
